FAERS Safety Report 6820728-3 (Version None)
Quarter: 2010Q3

REPORT INFORMATION
  Report Type: 
  Country: None (occurrence: None)
  Receive Date: 20100707
  Receipt Date: 20070523
  Transmission Date: 20110219
  Serious: No
  Sender: FDA-Public Use
  Company Number: US-PFIZER INC-2007041994

PATIENT
  Sex: Female

DRUGS (3)
  1. ZOLOFT [Suspect]
  2. SITAGLIPTIN [Suspect]
     Indication: DIABETES MELLITUS
     Route: 048
     Dates: start: 20070507
  3. DRUG, UNSPECIFIED [Concomitant]

REACTIONS (1)
  - OROPHARYNGEAL PAIN [None]
